FAERS Safety Report 6295916-8 (Version None)
Quarter: 2009Q3

REPORT INFORMATION
  Report Type: 
  Country: None (occurrence: None)
  Receive Date: 20090803
  Receipt Date: 20090803
  Transmission Date: 20100115
  Serious: No
  Sender: FDA-Public Use
  Company Number: None

PATIENT
  Age: 53 Year
  Sex: Female
  Weight: 119.7496 kg

DRUGS (1)
  1. SODIUM PHOSPHATES [Suspect]
     Indication: COLONOSCOPY

REACTIONS (2)
  - HAEMODIALYSIS [None]
  - NEPHRITIS [None]
